FAERS Safety Report 8624828 (Version 3)
Quarter: 2014Q1

REPORT INFORMATION
  Report Type: Spontaneous
  Country: US (occurrence: US)
  Receive Date: 20120620
  Receipt Date: 20140320
  Transmission Date: 20141002
  Serious: Yes (Hospitalization, Other)
  Sender: FDA-Public Use
  Company Number: US-ROCHE-783950

PATIENT
  Age: 21 Year
  Sex: Male
  Weight: 68.1 kg

DRUGS (2)
  1. ACCUTANE [Suspect]
     Indication: ACNE
     Route: 065
     Dates: start: 198912, end: 19900126
  2. ACCUTANE [Suspect]
     Route: 065
     Dates: start: 19900129, end: 199005

REACTIONS (13)
  - Crohn^s disease [Unknown]
  - Enterocolonic fistula [Unknown]
  - Small intestinal obstruction [Unknown]
  - Inflammatory bowel disease [Unknown]
  - Stress [Unknown]
  - Intestinal haemorrhage [Unknown]
  - Perirectal abscess [Unknown]
  - Rectal polyp [Unknown]
  - Depression [Unknown]
  - Suicidal ideation [Unknown]
  - Bipolar disorder [Unknown]
  - Headache [Recovered/Resolved]
  - Irritable bowel syndrome [Not Recovered/Not Resolved]
